FAERS Safety Report 5635689-2 (Version None)
Quarter: 2008Q1

REPORT INFORMATION
  Report Type: 
  Country: None (occurrence: None)
  Receive Date: 20080220
  Receipt Date: 20080206
  Transmission Date: 20080703
  Serious: Yes (Hospitalization, Disabling)
  Sender: FDA-Public Use
  Company Number: 2008PV000007

PATIENT
  Age: 75 Year
  Sex: Female
  Weight: 68.3 kg

DRUGS (1)
  1. DEPOCYT [Suspect]
     Indication: LEUKAEMIC INFILTRATION BRAIN
     Dosage: 50 MG;QOM;INTH
     Route: 037
     Dates: start: 20070824, end: 20071127

REACTIONS (2)
  - CONUS MEDULLARIS SYNDROME [None]
  - NEUROTOXICITY [None]
